FAERS Safety Report 4577882-6 (Version None)
Quarter: 2005Q1

REPORT INFORMATION
  Report Type: 
  Country: None (occurrence: None)
  Receive Date: 20050209
  Receipt Date: 20050131
  Transmission Date: 20050727
  Serious: Yes (Life-Threatening, Hospitalization)
  Sender: FDA-Public Use
  Company Number: 2005-01-2229

PATIENT
  Age: 30 Year
  Sex: Female
  Weight: 49 kg

DRUGS (1)
  1. CELESTONE SOLUSPAN INJECTABLE SUSPENSION (BETAMETHASONE SOD PHOSPHATE/ [Suspect]
     Indication: MATERNAL THERAPY TO ENHANCE FOETAL LUNG MATURITY
     Dosage: QWK X 8WKS INTRAMUSCULAR
     Route: 030
     Dates: start: 20040201

REACTIONS (2)
  - DRUG EXPOSURE DURING PREGNANCY [None]
  - TUBERCULOSIS [None]
